FAERS Safety Report 6748190-X (Version None)
Quarter: 2010Q2

REPORT INFORMATION
  Report Type: 
  Country: None (occurrence: None)
  Receive Date: 20100531
  Receipt Date: 20100517
  Transmission Date: 20101027
  Serious: Yes (Other)
  Sender: FDA-Public Use
  Company Number: DE-ELI_LILLY_AND_COMPANY-DE201005004699

PATIENT
  Age: 7 Year
  Sex: Male

DRUGS (2)
  1. STRATTERA [Suspect]
     Indication: ASPERGER'S DISORDER
     Dosage: 18 MG, UNKNOWN
     Route: 048
  2. RISPERIDONE [Concomitant]
     Dosage: 0.25 MG, UNK

REACTIONS (5)
  - AGITATION [None]
  - ELECTROCARDIOGRAM QT PROLONGED [None]
  - HEART RATE INCREASED [None]
  - OFF LABEL USE [None]
  - SOMNOLENCE [None]
